FAERS Safety Report 9668364 (Version 1)
Quarter: 2013Q4

REPORT INFORMATION
  Report Type: Spontaneous
  Country: US (occurrence: US)
  Receive Date: 20131104
  Receipt Date: 20131104
  Transmission Date: 20140711
  Serious: No
  Sender: FDA-Public Use
  Company Number: US-TEVA-442186USA

PATIENT
  Age: 21 Year
  Sex: Female
  Weight: 61.29 kg

DRUGS (3)
  1. PARAGARD 380A [Suspect]
     Indication: CONTRACEPTION
     Route: 015
     Dates: start: 201303
  2. WARFARIN [Concomitant]
     Indication: THROMBOSIS
     Dates: end: 201306
  3. ACETYLSALICYLIC ACID [Concomitant]
     Indication: THROMBOSIS
     Dates: start: 201306

REACTIONS (4)
  - Cystitis [Recovered/Resolved]
  - Hypomenorrhoea [Recovered/Resolved]
  - Vaginal haemorrhage [Recovered/Resolved]
  - Abdominal pain [Recovered/Resolved]
